FAERS Safety Report 9521420 (Version 1)
Quarter: 2013Q3

REPORT INFORMATION
  Report Type: Spontaneous
  Country: TR (occurrence: TR)
  Receive Date: 20130913
  Receipt Date: 20130913
  Transmission Date: 20140515
  Serious: Yes (Hospitalization)
  Sender: FDA-Public Use
  Company Number: TR-ABBOTT-13X-161-1146140-00

PATIENT
  Age: 31 Year
  Sex: Female

DRUGS (4)
  1. VALPROATE SALT NOT SPECIFIED [Suspect]
     Indication: JUVENILE MYOCLONIC EPILEPSY
  2. VALPROATE SALT NOT SPECIFIED [Suspect]
     Indication: IDIOPATHIC GENERALISED EPILEPSY
  3. LAMOTRIGINE [Suspect]
     Indication: JUVENILE MYOCLONIC EPILEPSY
  4. LAMOTRIGINE [Suspect]
     Indication: IDIOPATHIC GENERALISED EPILEPSY

REACTIONS (3)
  - Condition aggravated [Unknown]
  - Myoclonic epilepsy [Unknown]
  - Grand mal convulsion [Unknown]
